FAERS Safety Report 10203659 (Version 2)
Quarter: 2014Q2

REPORT INFORMATION
  Report Type: Spontaneous
  Country: FR (occurrence: FR)
  Receive Date: 20140529
  Receipt Date: 20140529
  Transmission Date: 20141212
  Serious: Yes (Other)
  Sender: FDA-Public Use
  Company Number: FR-JNJFOC-20140420829

PATIENT
  Age: 29 Year
  Sex: Female

DRUGS (8)
  1. XARELTO [Suspect]
     Indication: EMBOLISM VENOUS
     Route: 048
     Dates: start: 20140427
  2. XARELTO [Suspect]
     Indication: EMBOLISM VENOUS
     Route: 048
     Dates: start: 20140423, end: 20140427
  3. XARELTO [Suspect]
     Indication: PULMONARY EMBOLISM
     Route: 048
     Dates: start: 20140427
  4. XARELTO [Suspect]
     Indication: PULMONARY EMBOLISM
     Route: 048
     Dates: start: 20140423, end: 20140427
  5. AUGMENTIN [Concomitant]
     Route: 048
     Dates: start: 20140414, end: 20140421
  6. TAVANIC [Concomitant]
     Route: 048
     Dates: start: 20140414, end: 20140421
  7. PYOSTACINE [Concomitant]
     Route: 048
     Dates: start: 20140421, end: 20140429
  8. TRIELLA [Concomitant]
     Route: 065

REACTIONS (4)
  - Haemoptysis [Unknown]
  - Myalgia [Unknown]
  - Dyspnoea [Unknown]
  - Incorrect dose administered [Unknown]
